FAERS Safety Report 7042957-9 (Version None)
Quarter: 2010Q4

REPORT INFORMATION
  Report Type: 
  Country: None (occurrence: None)
  Receive Date: 20101013
  Receipt Date: 20101011
  Transmission Date: 20110411
  Serious: Yes (Life-Threatening)
  Sender: FDA-Public Use
  Company Number: IT-BRISTOL-MYERS SQUIBB COMPANY-15328750

PATIENT
  Age: 82 Year
  Sex: Female

DRUGS (3)
  1. COUMADIN [Suspect]
     Indication: ATRIAL FIBRILLATION
     Dates: start: 20080101, end: 20100920
  2. SELES BETA [Concomitant]
     Indication: CARDIAC FAILURE
     Dosage: SELES BETA 100MG TABS
     Route: 048
     Dates: start: 20060101, end: 20100920
  3. LASIX [Concomitant]
     Indication: CARDIAC FAILURE
     Route: 048
     Dates: start: 20080101, end: 20100920

REACTIONS (5)
  - ASTHENIA [None]
  - CARDIAC FAILURE [None]
  - FATIGUE [None]
  - INTERNATIONAL NORMALISED RATIO DECREASED [None]
  - SOMNOLENCE [None]
